FAERS Safety Report 8164690-2 (Version None)
Quarter: 2012Q1

REPORT INFORMATION
  Report Type: 
  Country: None (occurrence: None)
  Receive Date: 20120227
  Receipt Date: 20120215
  Transmission Date: 20120608
  Serious: No
  Sender: FDA-Public Use
  Company Number: US-BIOGENIDEC-2011BI025104

PATIENT
  Age: 32 Year
  Sex: Female

DRUGS (2)
  1. MULTI-VITAMIN [Concomitant]
  2. TYSABRI [Suspect]
     Indication: MULTIPLE SCLEROSIS
     Route: 042
     Dates: start: 20110318, end: 20110610

REACTIONS (1)
  - HERPES ZOSTER OPHTHALMIC [None]
